FAERS Safety Report 8177428-X (Version None)
Quarter: 2012Q1

REPORT INFORMATION
  Report Type: 
  Country: None (occurrence: None)
  Receive Date: 20120301
  Receipt Date: 20120221
  Transmission Date: 20120608
  Serious: No
  Sender: FDA-Public Use
  Company Number: US-B.I. PHARMACEUTICALS,INC./RIDGEFIELD-2012-BP-03310BP

PATIENT
  Sex: Female

DRUGS (2)
  1. SPIRIVA [Suspect]
     Dosage: 36 MCG
     Route: 055
     Dates: start: 20090101, end: 20090101
  2. SPIRIVA [Suspect]
     Indication: CHRONIC OBSTRUCTIVE PULMONARY DISEASE
     Dosage: 18 MCG
     Route: 055
     Dates: start: 20050101

REACTIONS (4)
  - OEDEMA MOUTH [None]
  - INCORRECT DOSE ADMINISTERED [None]
  - SWELLING FACE [None]
  - LIP SWELLING [None]
